FAERS Safety Report 9191599 (Version 1)
Quarter: 2013Q1

REPORT INFORMATION
  Report Type: Spontaneous
  Country: US (occurrence: US)
  Receive Date: 20130326
  Receipt Date: 20130326
  Transmission Date: 20140127
  Serious: Yes (Other)
  Sender: FDA-Public Use
  Company Number: US-MYLANLABS-2013S1005834

PATIENT
  Age: 61 Year
  Sex: Male

DRUGS (1)
  1. METHOTREXATE [Suspect]
     Indication: LYMPHOMA
     Dosage: 300 MICROG/0.05ML BIWEEKLY FOR 1 MONTH, WEEKLY FOR 1 MONTH, AND THEN MONTHLY
     Route: 031

REACTIONS (1)
  - Keratitis [Recovered/Resolved]
